FAERS Safety Report 17190185 (Version 1)
Quarter: 2019Q4

REPORT INFORMATION
  Report Type: Report from Study
  Country: None (occurrence: US)
  Receive Date: 20191223
  Receipt Date: 20191223
  Transmission Date: 20200122
  Serious: Yes (Death, Hospitalization)
  Sender: FDA-Public Use
  Company Number: US-INSMED, INC.-US-INS-19-03226

PATIENT
  Sex: Male

DRUGS (2)
  1. LAMIRA NEBULIZER SYSTEM [Suspect]
     Active Substance: DEVICE
  2. ARIKAYCE [Suspect]
     Active Substance: AMIKACIN
     Indication: MYCOBACTERIUM AVIUM COMPLEX INFECTION
     Route: 055

REACTIONS (2)
  - Death [Fatal]
  - Pneumonia [Recovering/Resolving]
